FAERS Safety Report 21213254 (Version 1)
Quarter: 2022Q3

REPORT INFORMATION
  Report Type: Spontaneous
  Country: JP (occurrence: JP)
  Receive Date: 20220815
  Receipt Date: 20220815
  Transmission Date: 20221027
  Serious: Yes (Other)
  Sender: FDA-Public Use
  Company Number: JP-NEUROCRINE BIOSCIENCES INC.-2022NBI04611

PATIENT

DRUGS (2)
  1. VALBENAZINE [Suspect]
     Active Substance: VALBENAZINE
     Indication: Tardive dyskinesia
     Dosage: 40 MILLIGRAM, QD
     Route: 048
     Dates: start: 20220614, end: 20220627
  2. LURASIDONE HYDROCHLORIDE [Concomitant]
     Active Substance: LURASIDONE HYDROCHLORIDE
     Indication: Depression

REACTIONS (4)
  - Tardive dyskinesia [Unknown]
  - Depression [Unknown]
  - Salivary hypersecretion [Unknown]
  - Anxiety [Unknown]

NARRATIVE: CASE EVENT DATE: 20220601
